FAERS Safety Report 4309149-5 (Version None)
Quarter: 2004Q1

REPORT INFORMATION
  Report Type: 
  Country: None (occurrence: None)
  Receive Date: 20040301
  Receipt Date: 20040213
  Transmission Date: 20041129
  Serious: Yes (Death)
  Sender: FDA-Public Use
  Company Number: S04-USA-00729-01

PATIENT
  Age: 40 Year
  Sex: Female

DRUGS (6)
  1. LEXAPRO [Suspect]
     Indication: ANXIETY
     Dosage: 10 MG QD PO
     Route: 048
     Dates: start: 20040206, end: 20040210
  2. LEXAPRO [Suspect]
     Indication: DEPRESSION
     Dosage: 10 MG QD PO
     Route: 048
     Dates: start: 20040206, end: 20040210
  3. LEXAPRO [Suspect]
     Indication: ANXIETY
     Dosage: 5 MG QD PO
     Route: 048
     Dates: start: 20040126, end: 20040205
  4. LEXAPRO [Suspect]
     Indication: DEPRESSION
     Dosage: 5 MG QD PO
     Route: 048
     Dates: start: 20040126, end: 20040205
  5. PROTONIX [Concomitant]
  6. ELAVIL [Concomitant]

REACTIONS (7)
  - ANXIETY [None]
  - COMPLETED SUICIDE [None]
  - DEPRESSION [None]
  - DIZZINESS [None]
  - FATIGUE [None]
  - GUN SHOT WOUND [None]
  - SLEEP DISORDER [None]
